FAERS Safety Report 6153335-9 (Version None)
Quarter: 2009Q2

REPORT INFORMATION
  Report Type: 
  Country: None (occurrence: None)
  Receive Date: 20090413
  Receipt Date: 20090413
  Transmission Date: 20091009
  Serious: Yes (Hospitalization)
  Sender: FDA-Public Use
  Company Number: CA-PFIZER INC-2009192758

PATIENT

DRUGS (14)
  1. NAPROXEN [Suspect]
     Indication: OSTEOARTHRITIS
     Dosage: UNK
     Route: 048
     Dates: start: 20071123, end: 20090129
  2. BLINDED *PLACEBO [Suspect]
     Indication: OSTEOARTHRITIS
     Dosage: UNK
     Route: 048
     Dates: start: 20071123, end: 20090129
  3. BLINDED CELECOXIB [Suspect]
     Indication: OSTEOARTHRITIS
     Dosage: UNK
     Route: 048
     Dates: start: 20071123, end: 20090129
  4. IBUPROFEN [Suspect]
     Indication: OSTEOARTHRITIS
     Dosage: UNK
     Route: 048
     Dates: start: 20071123, end: 20090129
  5. NAPROXEN [Suspect]
     Dosage: UNK
     Route: 048
     Dates: start: 20071123, end: 20090129
  6. NAPROXEN [Suspect]
     Indication: RHEUMATOID ARTHRITIS
  7. BLINDED *PLACEBO [Suspect]
     Indication: RHEUMATOID ARTHRITIS
  8. BLINDED CELECOXIB [Suspect]
     Indication: RHEUMATOID ARTHRITIS
  9. IBUPROFEN [Suspect]
     Indication: RHEUMATOID ARTHRITIS
  10. NAPROXEN [Suspect]
  11. ESOMEPRAZOLE [Concomitant]
     Dosage: 40 MG, 1X/DAY
     Dates: start: 20071123, end: 20090129
  12. LIPITOR [Concomitant]
     Dosage: 10 MG, 1X/DAY
     Route: 048
     Dates: start: 20040101
  13. ALLOPURINOL [Concomitant]
     Dosage: 300 MG, 1X/DAY
  14. PARIET [Concomitant]
     Dosage: 20 MG, 1X/DAY
     Route: 048
     Dates: start: 20040101

REACTIONS (1)
  - CHOLECYSTITIS ACUTE [None]
